FAERS Safety Report 7373984-X (Version None)
Quarter: 2011Q1

REPORT INFORMATION
  Report Type: 
  Country: None (occurrence: None)
  Receive Date: 20110325
  Receipt Date: 20110322
  Transmission Date: 20110831
  Serious: No
  Sender: FDA-Public Use
  Company Number: US-PFIZER INC-2011063616

PATIENT
  Sex: Female

DRUGS (6)
  1. CHANTIX [Suspect]
     Indication: SMOKING CESSATION THERAPY
     Dosage: 0.5 MG, 1X/DAY
     Route: 048
     Dates: start: 20110201, end: 20110201
  2. CHANTIX [Suspect]
     Dosage: 1 MG, 2X/DAY
     Route: 048
     Dates: start: 20110201
  3. MORPHINE [Concomitant]
     Dosage: 30 MG, 3X/DAY
  4. SENNA [Concomitant]
     Dosage: 100 MG, UNK
  5. OXYCODONE [Concomitant]
     Dosage: 5 MG, UNK
  6. FLEXERIL [Concomitant]
     Dosage: UNK

REACTIONS (3)
  - HYPERSOMNIA [None]
  - ABNORMAL DREAMS [None]
  - HEADACHE [None]
